FAERS Safety Report 21231686 (Version 1)
Quarter: 2022Q3

REPORT INFORMATION
  Report Type: Spontaneous
  Country: FR (occurrence: FR)
  Receive Date: 20220819
  Receipt Date: 20220819
  Transmission Date: 20221026
  Serious: Yes (Life-Threatening)
  Sender: FDA-Public Use
  Company Number: None

PATIENT
  Age: 52 Year
  Sex: Male
  Weight: 100 kg

DRUGS (17)
  1. QUETIAPINE [Suspect]
     Active Substance: QUETIAPINE
     Indication: Schizophrenia
     Dosage: AT BEDTIME, UNIT DOSE : 300 MG, FREQUENCY TIME : 1 DAY, THERAPY START DATE : NASK
     Dates: end: 20220520
  2. ANETHOLTRITHION [Suspect]
     Active Substance: ANETHOLTRITHION
     Indication: Product used for unknown indication
     Dosage: 150 MILLIGRAM DAILY; 25 MG - 2 TABLETS MORNING NOON EVENING, STRENGTH: 25 MG, THERAPY START DATE : N
     Dates: end: 20220520
  3. ZUCLOPENTHIXOL [Suspect]
     Active Substance: ZUCLOPENTHIXOL
     Indication: Schizophrenia
     Dosage: 1 DAY/MONTH, CLOPIXOL LONG ACTION 200 MG/1 ML, SOLUTION FOR INJECTION I.M., THERAPY START DATE : NAS
     Route: 030
     Dates: end: 20220520
  4. ROSUVASTATIN CALCIUM [Suspect]
     Active Substance: ROSUVASTATIN CALCIUM
     Indication: Hypercholesterolaemia
     Dosage: 20 MILLIGRAM DAILY; EVENING, STRENGTH: 20 MG, FREQUENCY TIME : 1 DAY, THERAPY START DATE : NASK
     Dates: end: 20220520
  5. LOXAPINE [Suspect]
     Active Substance: LOXAPINE
     Indication: Schizophrenia
     Dosage: AT BEDTIME, UNIT DOSE : 100 MG, FREQUENCY TIME : 1 DAY, THERAPY START DATE : NASK
     Dates: end: 20220520
  6. LOXAPINE [Suspect]
     Active Substance: LOXAPINE
     Dosage: 50 MILLIGRAM DAILY; 25 MG MORNING AND NOON, THERAPY START DATE : NASK
     Dates: end: 20220520
  7. SERETIDE [Suspect]
     Active Substance: FLUTICASONE PROPIONATE\SALMETEROL XINAFOATE
     Indication: Asthma
     Dosage: 4 DOSAGE FORMS DAILY; 2 INHALATIONS MORNING AND EVENING, SERETIDE DISKUS 500/50 MICROGRAMS/DOSE, POW
     Dates: end: 20220520
  8. FOLIC ACID [Suspect]
     Active Substance: FOLIC ACID
     Indication: Product used for unknown indication
     Dosage: 10 MILLIGRAM DAILY; 5 MG MORNING EVENING, ACIDE FOLIQUE ARROW 5 MG, THERAPY START DATE : NASK
     Dates: end: 20220520
  9. LORMETAZEPAM [Suspect]
     Active Substance: LORMETAZEPAM
     Indication: Product used for unknown indication
     Dosage: AT BEDTIME, STRENGTH: 2 MG, SCORED TABLET, THERAPY START DATE : NASK, FREQUENCY TIME : 1 DAY
     Dates: end: 20220520
  10. DIOSMIN\HESPERIDIN [Suspect]
     Active Substance: DIOSMIN\HESPERIDIN
     Indication: Product used for unknown indication
     Dosage: 1000 MILLIGRAM DAILY; 500 MG MORNING AND EVENING, STRENGTH: 500 MG, FREQUENCY TIME : 1 DAY, THERAPY
     Dates: end: 20220520
  11. VALPROATE SODIUM [Suspect]
     Active Substance: VALPROATE SODIUM
     Indication: Epilepsy
     Dosage: 2 MILLIGRAM DAILY; 1G MORNING AND EVENING,  STRENGTH: 500 MG, FILM-COATED TABLET WITH PROLONGED RELE
     Dates: end: 20220520
  12. DISULFIRAM [Suspect]
     Active Substance: DISULFIRAM
     Indication: Alcoholism
     Dosage: MORNING, STRENGTH: 500 MG, FREQUENCY TIME : 1 DAY, UNIT DOSE : 500 MG, THERAPY START DATE : NASK
     Dates: end: 20220520
  13. ALBUTEROL [Suspect]
     Active Substance: ALBUTEROL
     Indication: Asthma
     Dosage: UNIT DOSE: 100 UG, THERAPY START DATE : NASK
     Dates: end: 20220520
  14. PROPRANOLOL HYDROCHLORIDE [Suspect]
     Active Substance: PROPRANOLOL HYDROCHLORIDE
     Indication: Hypertension
     Dosage: MORNING, STRENGTH: 40 MG , THERAPY START DATE : ASKU, FREQUENCY TIME : 1 DAY, UNIT DOSE :40 MG
     Dates: end: 20220520
  15. TRIHEXYPHENIDYL [Suspect]
     Active Substance: TRIHEXYPHENIDYL
     Indication: Parkinsonism
     Dosage: 10 MILLIGRAM DAILY; 5 MG MORNING AND EVENING, PARKINANE L P 5 MG, THERAPY START DATE : NASK, FREQUEN
     Dates: end: 20220520
  16. ESOMEPRAZOLE MAGNESIUM [Suspect]
     Active Substance: ESOMEPRAZOLE MAGNESIUM
     Indication: Gastroduodenal ulcer
     Dosage: 40 MILLIGRAM DAILY; EVENING, STRENGTH: 40 MG, UNIT DOSE : 40 MG, FREQUENCY TIME : 1 DAY, THERAPY STA
     Dates: end: 20220520
  17. OXAZEPAM [Concomitant]
     Active Substance: OXAZEPAM
     Indication: Alcohol withdrawal syndrome
     Dosage: 300 MILLIGRAM DAILY; 2 TABLETS OF 50MG MORNING NOON AND EVENING, FREQUENCY TIME : 1 DAY
     Dates: end: 20220520

REACTIONS (1)
  - Hypovolaemic shock [Recovering/Resolving]

NARRATIVE: CASE EVENT DATE: 20220520
